FAERS Safety Report 24697231 (Version 2)
Quarter: 2025Q1

REPORT INFORMATION
  Report Type: Report from Study
  Country: BR (occurrence: BR)
  Receive Date: 20241204
  Receipt Date: 20250124
  Transmission Date: 20250409
  Serious: Yes (Other)
  Sender: NOVARTIS
  Company Number: BR-002147023-NVSC2024BR070801

PATIENT
  Sex: Male

DRUGS (1)
  1. COSENTYX [Suspect]
     Active Substance: SECUKINUMAB
     Indication: Product used for unknown indication
     Route: 065
     Dates: start: 202401

REACTIONS (7)
  - Ankylosing spondylitis [Unknown]
  - Musculoskeletal discomfort [Unknown]
  - Pain [Recovering/Resolving]
  - Therapeutic response decreased [Unknown]
  - Arthralgia [Unknown]
  - Tenderness [Unknown]
  - Arthritis [Unknown]
